FAERS Safety Report 13379502 (Version 1)
Quarter: 2017Q1

REPORT INFORMATION
  Report Type: Spontaneous
  Country: CN (occurrence: CN)
  Receive Date: 20170328
  Receipt Date: 20170328
  Transmission Date: 20170429
  Serious: Yes (Other)
  Sender: FDA-Public Use
  Company Number: CN-JNJFOC-20170320695

PATIENT
  Age: 71 Year
  Sex: Female

DRUGS (1)
  1. ITRACONAZOLE. [Suspect]
     Active Substance: ITRACONAZOLE
     Indication: PULMONARY MYCOSIS
     Route: 065
     Dates: start: 20150717, end: 20150723

REACTIONS (1)
  - Acute lung injury [Recovering/Resolving]
